FAERS Safety Report 19129461 (Version 4)
Quarter: 2022Q1

REPORT INFORMATION
  Report Type: Spontaneous
  Country: US (occurrence: US)
  Receive Date: 20210413
  Receipt Date: 20220328
  Transmission Date: 20220423
  Serious: No
  Sender: FDA-Public Use
  Company Number: US-PFIZER INC-2021307849

PATIENT
  Age: 61 Year
  Sex: Male

DRUGS (3)
  1. XELJANZ [Suspect]
     Active Substance: TOFACITINIB CITRATE
     Indication: Rheumatoid arthritis
     Dosage: 5 MG, 2X/DAY
     Route: 048
     Dates: start: 202102
  2. PREDNISONE [Concomitant]
     Active Substance: PREDNISONE
     Dosage: UNK, DAILY
  3. PREDNISONE [Concomitant]
     Active Substance: PREDNISONE
     Dosage: UNK, ALTERNATE DAY

REACTIONS (3)
  - Therapeutic product effect incomplete [Unknown]
  - Somnolence [Unknown]
  - Product dose omission in error [Unknown]

NARRATIVE: CASE EVENT DATE: 20210101
